FAERS Safety Report 6640069-7 (Version None)
Quarter: 2010Q1

REPORT INFORMATION
  Report Type: 
  Country: None (occurrence: None)
  Receive Date: 20100318
  Receipt Date: 20100310
  Transmission Date: 20100710
  Serious: Yes (Death, Other)
  Sender: FDA-Public Use
  Company Number: US-BAXTER-2010BH000877

PATIENT
  Age: 57 Year
  Sex: Male

DRUGS (4)
  1. HEPARIN SODIUM INJECTION [Suspect]
     Indication: PROPHYLAXIS
     Route: 042
     Dates: start: 20080108, end: 20080113
  2. LANTUS [Concomitant]
     Indication: DRUG USE FOR UNKNOWN INDICATION
     Route: 065
  3. LISINOPRIL [Concomitant]
     Indication: DRUG USE FOR UNKNOWN INDICATION
     Route: 065
  4. ASPIRIN [Concomitant]
     Indication: DRUG USE FOR UNKNOWN INDICATION
     Route: 065

REACTIONS (16)
  - BACK PAIN [None]
  - CARDIAC FAILURE [None]
  - CHEST DISCOMFORT [None]
  - DEATH [None]
  - DEHYDRATION [None]
  - DYSPNOEA [None]
  - FLUID OVERLOAD [None]
  - FLUSHING [None]
  - HEADACHE [None]
  - HEART RATE IRREGULAR [None]
  - HYPOTENSION [None]
  - NAUSEA [None]
  - RENAL FAILURE [None]
  - SYNCOPE [None]
  - THROMBOCYTOPENIA [None]
  - VISION BLURRED [None]
